FAERS Safety Report 25498482 (Version 2)
Quarter: 2025Q4

REPORT INFORMATION
  Report Type: Report from Study
  Country: US (occurrence: US)
  Receive Date: 20250701
  Receipt Date: 20251203
  Transmission Date: 20260117
  Serious: Yes (Hospitalization, Other)
  Sender: ABBVIE
  Company Number: US-ABBVIE-6348274

PATIENT
  Age: 20 Year
  Sex: Male

DRUGS (5)
  1. SKYRIZI [Suspect]
     Active Substance: RISANKIZUMAB-RZAA
     Indication: Crohn^s disease
     Dosage: WEEK 12, STRENGTH: 360MG/2.4ML
     Route: 058
     Dates: start: 202506, end: 202506
  2. SKYRIZI [Suspect]
     Active Substance: RISANKIZUMAB-RZAA
     Dosage: STRENGTH: 360MG/2.4ML
     Route: 058
     Dates: start: 202508
  3. SKYRIZI [Suspect]
     Active Substance: RISANKIZUMAB-RZAA
     Indication: Crohn^s disease
     Dosage: WEEK 0
     Route: 042
     Dates: start: 202503, end: 202503
  4. SKYRIZI [Suspect]
     Active Substance: RISANKIZUMAB-RZAA
     Indication: Crohn^s disease
     Dosage: FIRST ADMIN DATE 2025?WEEK 4
     Route: 042
     Dates: start: 202504, end: 202504
  5. SKYRIZI [Suspect]
     Active Substance: RISANKIZUMAB-RZAA
     Indication: Crohn^s disease
     Dosage: FIRST ADMIN DATE 2025?WEEK 8
     Route: 042
     Dates: start: 202505, end: 202505

REACTIONS (4)
  - Stoma creation [Unknown]
  - Injection site haemorrhage [Unknown]
  - Injection site mass [Unknown]
  - Abdominal abscess [Unknown]

NARRATIVE: CASE EVENT DATE: 20250101
